FAERS Safety Report 4538314-7 (Version None)
Quarter: 2004Q4

REPORT INFORMATION
  Report Type: 
  Country: None (occurrence: None)
  Receive Date: 20041227
  Receipt Date: 20041216
  Transmission Date: 20050328
  Serious: Yes (Death, Life-Threatening, Hospitalization, Other)
  Sender: FDA-Public Use
  Company Number: US-BRISTOL-MYERS SQUIBB COMPANY-12798377

PATIENT
  Age: 58 Year
  Sex: Female

DRUGS (2)
  1. TAXOL [Suspect]
     Indication: ENDOMETRIAL CANCER
     Dosage: VARYING DOSES STARTING AT 255MG AND DECREASING DOWN TO 105MG.
     Dates: start: 20030221, end: 20040203
  2. PARAPLATIN [Suspect]
     Indication: ENDOMETRIAL CANCER
     Dates: start: 20030221, end: 20030528

REACTIONS (5)
  - ACUTE MYELOID LEUKAEMIA [None]
  - CHOLECYSTITIS ACUTE [None]
  - FEBRILE NEUTROPENIA [None]
  - INFECTION [None]
  - MYELODYSPLASTIC SYNDROME [None]
